FAERS Safety Report 9267098 (Version 2)
Quarter: 2013Q2

REPORT INFORMATION
  Report Type: Report from Study
  Country: DE (occurrence: DE)
  Receive Date: 20130502
  Receipt Date: 20130522
  Transmission Date: 20140414
  Serious: Yes (Life-Threatening)
  Sender: FDA-Public Use
  Company Number: DE-GENZYME-CLOF-1002605

PATIENT
  Age: 64 Year
  Sex: Female
  Weight: 103 kg

DRUGS (6)
  1. EVOLTRA [Suspect]
     Indication: ACUTE MYELOID LEUKAEMIA
     Dosage: 60 MG, (DAY 1,2,4,5 AND 6)
     Route: 042
     Dates: start: 20130415, end: 20130420
  2. CYTARABINE [Suspect]
     Indication: ACUTE MYELOID LEUKAEMIA
     Dosage: 200 MG, (DAY 1,2,4,5 AND 6)
     Route: 042
     Dates: start: 20130415, end: 20130420
  3. CASPOFUNGIN [Concomitant]
     Indication: INFECTION
     Dosage: 50 MG, QD
     Route: 065
  4. IMIPENEM [Concomitant]
     Indication: INFECTION
     Dosage: 500 MG, QID
     Route: 065
  5. VANCOMYCIN [Concomitant]
     Indication: INFECTION
     Dosage: 1 G, BID
     Route: 065
  6. METRONIDAZOLE [Concomitant]
     Indication: INFECTION
     Dosage: 500 MG, TID
     Route: 065

REACTIONS (1)
  - Atrial fibrillation [Recovered/Resolved]
